FAERS Safety Report 12831494 (Version 1)
Quarter: 2016Q4

REPORT INFORMATION
  Report Type: Spontaneous
  Country: CA (occurrence: CA)
  Receive Date: 20161009
  Receipt Date: 20161009
  Transmission Date: 20170207
  Serious: Yes (Other)
  Sender: FDA-Public Use
  Company Number: CA-AMGEN-CANSP2016135643

PATIENT
  Age: 57 Year
  Sex: Female

DRUGS (13)
  1. PREGABALIN. [Concomitant]
     Active Substance: PREGABALIN
  2. CYCLOSPORINE. [Concomitant]
     Active Substance: CYCLOSPORINE
  3. CITALOPRAM [Concomitant]
     Active Substance: CITALOPRAM HYDROBROMIDE
  4. SOLIFENACIN [Concomitant]
     Active Substance: SOLIFENACIN
  5. REPATHA [Suspect]
     Active Substance: EVOLOCUMAB
     Indication: PRODUCT USED FOR UNKNOWN INDICATION
     Dosage: UNK UNK, Q2WK
     Route: 065
  6. FUROSEMIDE. [Concomitant]
     Active Substance: FUROSEMIDE
  7. ZOPICLONE [Concomitant]
     Active Substance: ZOPICLONE
  8. AZATHIOPRINE. [Concomitant]
     Active Substance: AZATHIOPRINE
  9. EZETIMIBE. [Concomitant]
     Active Substance: EZETIMIBE
  10. LODALIS [Concomitant]
     Active Substance: COLESEVELAM HYDROCHLORIDE
  11. XENICAL [Concomitant]
     Active Substance: ORLISTAT
  12. SYNTHROID [Concomitant]
     Active Substance: LEVOTHYROXINE SODIUM
  13. PREDNISONE. [Concomitant]
     Active Substance: PREDNISONE

REACTIONS (6)
  - Micturition urgency [Unknown]
  - Back pain [Unknown]
  - Abdominal discomfort [Unknown]
  - Groin pain [Unknown]
  - Dysuria [Unknown]
  - Headache [Unknown]

NARRATIVE: CASE EVENT DATE: 201609
